FAERS Safety Report 18874006 (Version 2)
Quarter: 2023Q1

REPORT INFORMATION
  Report Type: Report from Study
  Country: US (occurrence: US)
  Receive Date: 20210210
  Receipt Date: 20230329
  Transmission Date: 20230417
  Serious: No
  Sender: FDA-Public Use
  Company Number: US-TAKEDA-2021TUS005311

PATIENT
  Sex: Female
  Weight: 92 kg

DRUGS (1)
  1. PENTASA [Suspect]
     Active Substance: MESALAMINE
     Indication: Crohn^s disease
     Dosage: 500 MILLIGRAM
     Route: 065

REACTIONS (3)
  - Intentional product use issue [Unknown]
  - Product use issue [Unknown]
  - No adverse event [Unknown]
